FAERS Safety Report 21745055 (Version 1)
Quarter: 2022Q4

REPORT INFORMATION
  Report Type: Spontaneous
  Country: US (occurrence: US)
  Receive Date: 20221219
  Receipt Date: 20221219
  Transmission Date: 20230113
  Serious: Yes (Life-Threatening, Hospitalization)
  Sender: FDA-Public Use
  Company Number: US-BoehringerIngelheim-2022-BI-208588

PATIENT
  Age: 58 Year
  Sex: Male

DRUGS (1)
  1. JARDIANCE [Suspect]
     Active Substance: EMPAGLIFLOZIN
     Indication: Cardiac disorder
     Route: 048
     Dates: start: 2022

REACTIONS (5)
  - Liver disorder [Recovering/Resolving]
  - Cardiac disorder [Recovering/Resolving]
  - Nephropathy [Recovering/Resolving]
  - Lung disorder [Recovering/Resolving]
  - Hypoacusis [Recovering/Resolving]
